FAERS Safety Report 18532837 (Version 1)
Quarter: 2020Q4

REPORT INFORMATION
  Report Type: Spontaneous
  Country: US (occurrence: US)
  Receive Date: 20201120
  Receipt Date: 20201120
  Transmission Date: 20210114
  Serious: Yes (Other)
  Sender: FDA-Public Use
  Company Number: None

PATIENT
  Age: 55 Year
  Sex: Female
  Weight: 117.03 kg

DRUGS (8)
  1. HCTZ [Concomitant]
     Active Substance: HYDROCHLOROTHIAZIDE
  2. LOSARTAN. [Concomitant]
     Active Substance: LOSARTAN
  3. OXYBUTYNIN. [Concomitant]
     Active Substance: OXYBUTYNIN CHLORIDE
  4. BENADRYL [Concomitant]
     Active Substance: DIPHENHYDRAMINE HYDROCHLORIDE
  5. CITALOPRAM [Concomitant]
     Active Substance: CITALOPRAM HYDROBROMIDE
  6. ADVAIR HFA [Concomitant]
     Active Substance: FLUTICASONE PROPIONATE\SALMETEROL XINAFOATE
  7. LEVOTHYROXINE 175MCG [Suspect]
     Active Substance: LEVOTHYROXINE
     Indication: HYPOTHYROIDISM
  8. ZYRTEC [Concomitant]
     Active Substance: CETIRIZINE HYDROCHLORIDE

REACTIONS (3)
  - Urticaria [None]
  - Swelling [None]
  - Product substitution issue [None]
